FAERS Safety Report 9928144 (Version 1)
Quarter: 2014Q1

REPORT INFORMATION
  Report Type: Spontaneous
  Country: IN (occurrence: None)
  Receive Date: 20140224
  Receipt Date: 20140224
  Transmission Date: 20141002
  Serious: Yes (Hospitalization)
  Sender: FDA-Public Use
  Company Number: 2014020149

PATIENT
  Age: 67 Year
  Sex: Female

DRUGS (4)
  1. TORSEMIDE [Suspect]
     Dosage: 6 MONTHS FROM ED 10MG, DAILY
  2. OLMESARTAN (OLMESARTAN) (TABLET) (OLMESARTAN) [Suspect]
     Dosage: 2 YEAR FROM ED 20MG DAILY
  3. INSULIN NOVA MIXTARD [Concomitant]
  4. PERINDOPRIL (PERINDOPRIL) [Suspect]
     Dosage: 16MONTHS FROM ED

REACTIONS (5)
  - Hyperkalaemia [None]
  - Paralysis [None]
  - Malaise [None]
  - Somnolence [None]
  - Disorientation [None]
